FAERS Safety Report 6772003-3 (Version None)
Quarter: 2010Q2

REPORT INFORMATION
  Report Type: 
  Country: None (occurrence: None)
  Receive Date: 20100616
  Receipt Date: 20090820
  Transmission Date: 20101027
  Serious: No
  Sender: FDA-Public Use
  Company Number: US-ASTRAZENECA-2009SE09124

PATIENT
  Age: 68 Year
  Sex: Female
  Weight: 95.3 kg

DRUGS (7)
  1. RHINOCORT [Suspect]
     Indication: CHRONIC SINUSITIS
     Route: 045
     Dates: start: 20090806
  2. DETROL LA [Concomitant]
     Indication: BLADDER DISORDER
  3. REQUIP [Concomitant]
  4. DICYCLOMINE [Concomitant]
     Indication: BLADDER DISORDER
  5. ZYRTEC [Concomitant]
  6. ZETIA [Concomitant]
  7. AVALIDE [Concomitant]
     Indication: BLOOD PRESSURE

REACTIONS (3)
  - AGEUSIA [None]
  - ANOSMIA [None]
  - DYSPHONIA [None]
